FAERS Safety Report 4504124-X (Version None)
Quarter: 2004Q4

REPORT INFORMATION
  Report Type: 
  Country: None (occurrence: None)
  Receive Date: 20041118
  Receipt Date: 20041108
  Transmission Date: 20050328
  Serious: Yes (Hospitalization)
  Sender: FDA-Public Use
  Company Number: GB-ABBOTT-04P-167-0280200-00

PATIENT
  Age: 50 Year
  Sex: Female

DRUGS (4)
  1. HUMIRA [Suspect]
     Indication: PSORIATIC ARTHROPATHY
     Route: 058
     Dates: start: 20040301, end: 20040901
  2. ETODOLAC [Concomitant]
     Indication: PSORIATIC ARTHROPATHY
     Route: 048
  3. APOREX [Concomitant]
     Indication: PSORIATIC ARTHROPATHY
  4. CALCIUM CARBONATE [Concomitant]
     Indication: PSORIATIC ARTHROPATHY

REACTIONS (2)
  - ARTHRALGIA [None]
  - JOINT EFFUSION [None]
